FAERS Safety Report 10167489 (Version 1)
Quarter: 2014Q2

REPORT INFORMATION
  Report Type: Spontaneous
  Country: US (occurrence: US)
  Receive Date: 20140512
  Receipt Date: 20140512
  Transmission Date: 20141212
  Serious: No
  Sender: FDA-Public Use
  Company Number: US-009507513-1405USA003432

PATIENT
  Age: 82 Year
  Sex: Female

DRUGS (2)
  1. JANUVIA [Suspect]
     Indication: TYPE 2 DIABETES MELLITUS
     Dosage: 100 MG/ONE TABLET ONCE DAILY
     Route: 048
     Dates: start: 20140502
  2. METFORMIN [Concomitant]
     Dosage: 2.5-500 MG TABLET, 2 TABLETS TWICE DAILY
     Route: 048

REACTIONS (2)
  - Asthenia [Not Recovered/Not Resolved]
  - Depressed mood [Not Recovered/Not Resolved]
